FAERS Safety Report 9528538 (Version 1)
Quarter: 2013Q3

REPORT INFORMATION
  Report Type: Spontaneous
  Country: US (occurrence: US)
  Receive Date: 20130917
  Receipt Date: 20130917
  Transmission Date: 20140515
  Serious: No
  Sender: FDA-Public Use
  Company Number: US-B.I. PHARMACEUTICALS,INC./RIDGEFIELD-2013-BI-28108BP

PATIENT
  Sex: Female
  Weight: 86 kg

DRUGS (3)
  1. COMBIVENT [Suspect]
     Indication: ASTHMA
     Route: 055
     Dates: end: 201306
  2. COMBIVENT [Suspect]
     Indication: ASTHMA
     Dosage: STRENGTH: 20 MCG / 100 MCG; DAILY DOSE: 40 MCG/200MCG
     Route: 055
     Dates: start: 201306
  3. QVAR [Concomitant]
     Indication: ASTHMA
     Route: 055
     Dates: start: 2011

REACTIONS (4)
  - Off label use [Unknown]
  - Off label use [Unknown]
  - Drug prescribing error [Unknown]
  - Drug prescribing error [Unknown]
